FAERS Safety Report 8696887 (Version 2)
Quarter: 2012Q4

REPORT INFORMATION
  Report Type: 
  Country: US (occurrence: US)
  Receive Date: 20120801
  Receipt Date: 20121206
  Transmission Date: 20130627
  Serious: Yes (Hospitalization, Other)
  Sender: FDA-Public Use
  Company Number: US-009507513-2011SP032589

PATIENT

DRUGS (1)
  1. NUVARING [Suspect]
     Indication: CONTRACEPTION
     Dosage: UNK
     Route: 067
     Dates: start: 20060406, end: 20081016

REACTIONS (12)
  - Pulmonary embolism [Unknown]
  - Deep vein thrombosis [Unknown]
  - Skin disorder [Unknown]
  - Blood cholesterol increased [Not Recovered/Not Resolved]
  - Hypercoagulation [Unknown]
  - Papilloma viral infection [Unknown]
  - Cervical dysplasia [Recovered/Resolved]
  - Facial bones fracture [Unknown]
  - Conjunctival haemorrhage [Unknown]
  - Urinary tract infection [Unknown]
  - Metrorrhagia [Unknown]
  - Cervical dysplasia [Unknown]
